FAERS Safety Report 5682897-0 (Version None)
Quarter: 2008Q1

REPORT INFORMATION
  Report Type: 
  Country: None (occurrence: None)
  Receive Date: 20080325
  Receipt Date: 20080318
  Transmission Date: 20080703
  Serious: Yes (Other)
  Sender: FDA-Public Use
  Company Number: 2008006821

PATIENT
  Age: 83 Year
  Sex: Female
  Weight: 63.5 kg

DRUGS (2)
  1. VISINE EYE DROPS [Suspect]
     Indication: DRY EYE
     Dosage: 1 DROP, 1-2 X DAILY, OPHTHALMIC
     Route: 047
  2. XALATAN [Suspect]
     Dosage: ONCE DAILY (1 IN 1 D)

REACTIONS (1)
  - CORNEAL DEPOSITS [None]
